FAERS Safety Report 21852218 (Version 1)
Quarter: 2023Q1

REPORT INFORMATION
  Report Type: Spontaneous
  Country: None (occurrence: US)
  Receive Date: 20230112
  Receipt Date: 20230112
  Transmission Date: 20230418
  Serious: Yes (Hospitalization)
  Sender: FDA-Public Use
  Company Number: US-Kindeva Drug Delivery L.P.-2136631

PATIENT
  Sex: Female

DRUGS (1)
  1. PROVENTIL HFA [Suspect]
     Active Substance: ALBUTEROL SULFATE
     Route: 055

REACTIONS (4)
  - Malaise [Unknown]
  - Lung disorder [Unknown]
  - Haemoptysis [Unknown]
  - Pulmonary mass [Unknown]
